FAERS Safety Report 12537957 (Version 1)
Quarter: 2016Q3

REPORT INFORMATION
  Report Type: Spontaneous
  Country: DE (occurrence: DE)
  Receive Date: 20160707
  Receipt Date: 20160707
  Transmission Date: 20161109
  Serious: Yes (Congenital Anomaly, Other)
  Sender: FDA-Public Use
  Company Number: DE-MYLANLABS-2016M1027346

PATIENT

DRUGS (7)
  1. AMPICILLIN [Concomitant]
     Active Substance: AMPICILLIN
     Indication: INFECTION PROPHYLAXIS
     Dosage: UNK
     Route: 064
     Dates: start: 20151119, end: 20151119
  2. DECORTIN-H                         /00016201/ [Suspect]
     Active Substance: PREDNISOLONE HEMISUCCINATE
     Indication: SARCOIDOSIS
     Dosage: 5.5 [MG/D ]/ MINIMUM DOSAGE 5 MG/D
     Route: 064
     Dates: start: 20150310, end: 20151119
  3. FEMIBION 1 [Concomitant]
     Indication: PROPHYLAXIS OF NEURAL TUBE DEFECT
     Dosage: 0.8 [MG/D ]
     Route: 064
  4. DEKRISTOL [Concomitant]
     Active Substance: CHOLECALCIFEROL
     Indication: OSTEOPOROSIS PROPHYLAXIS
     Dosage: 1000 [IE/D ]/ PROBABLY TAKEN LONGER. REDUCTION TO 500 IE/D, STOPPED DURING THE 1ST TRIMESTER
     Route: 064
     Dates: start: 20150310, end: 20150413
  5. CYTOTEC [Concomitant]
     Active Substance: MISOPROSTOL
     Indication: LABOUR INDUCTION
     Route: 064
     Dates: start: 20151119, end: 20151119
  6. ESCITALOPRAM [Suspect]
     Active Substance: ESCITALOPRAM OXALATE
     Indication: DEPRESSION
     Dosage: 10 [MG/D ]/ INTERMITTENTLY 7.5 MG/D FOR A SHORT TIME PERIOD.
     Route: 064
     Dates: start: 20150310, end: 20151119
  7. L-THYROXIN [Concomitant]
     Active Substance: LEVOTHYROXINE SODIUM
     Indication: HYPOTHYROIDISM
     Dosage: 75 [?G/D ]
     Route: 064
     Dates: start: 20150310, end: 20151119

REACTIONS (5)
  - Congenital hydronephrosis [Unknown]
  - Kidney duplex [Not Recovered/Not Resolved]
  - Foetal exposure during pregnancy [Unknown]
  - Bradycardia neonatal [Recovered/Resolved]
  - Respiratory disorder neonatal [Recovered/Resolved]

NARRATIVE: CASE EVENT DATE: 20151119
